FAERS Safety Report 8287592-X (Version None)
Quarter: 2012Q2

REPORT INFORMATION
  Report Type: 
  Country: None (occurrence: None)
  Receive Date: 20120416
  Receipt Date: 20120409
  Transmission Date: 20120825
  Serious: Yes (Hospitalization)
  Sender: FDA-Public Use
  Company Number: PHHY2012CL030469

PATIENT
  Sex: Female

DRUGS (3)
  1. HALDOL [Concomitant]
  2. LAMOTRGINE [Concomitant]
  3. CLOZAPINE [Suspect]
     Indication: SCHIZOPHRENIA
     Dosage: 150 MG, DAILY
     Route: 048
     Dates: start: 20120306

REACTIONS (4)
  - EOSINOPHIL COUNT INCREASED [None]
  - MYALGIA [None]
  - PYREXIA [None]
  - C-REACTIVE PROTEIN INCREASED [None]
